FAERS Safety Report 8938535 (Version 2)
Quarter: 2012Q4

REPORT INFORMATION
  Report Type: 
  Country: US (occurrence: US)
  Receive Date: 20121121
  Receipt Date: 20121212
  Transmission Date: 20130627
  Serious: Yes (Death, Other)
  Sender: FDA-Public Use
  Company Number: US-ASTELLAS-1111895

PATIENT
  Sex: Male

DRUGS (3)
  1. TARCEVA [Suspect]
     Indication: NON-SMALL CELL LUNG CANCER RECURRENT
     Route: 065
     Dates: start: 20090814
  2. ASPIRIN [Concomitant]
  3. MEDROL [Concomitant]

REACTIONS (3)
  - Lower gastrointestinal haemorrhage [Fatal]
  - Pneumonia aspiration [Unknown]
  - Hypovolaemic shock [Unknown]
